FAERS Safety Report 20548962 (Version 2)
Quarter: 2022Q2

REPORT INFORMATION
  Report Type: Spontaneous
  Country: US (occurrence: None)
  Receive Date: 20220303
  Receipt Date: 20220404
  Transmission Date: 20220721
  Serious: No
  Sender: FDA-Public Use
  Company Number: 2022A066182

PATIENT
  Sex: Female
  Weight: 68 kg

DRUGS (3)
  1. BYDUREON BCISE [Suspect]
     Active Substance: EXENATIDE
     Indication: Type 2 diabetes mellitus
     Route: 058
  2. BYETTA [Suspect]
     Active Substance: EXENATIDE
     Indication: Type 2 diabetes mellitus
     Dosage: TWO TIMES A DAY
     Route: 065
  3. BYDUREON [Suspect]
     Active Substance: EXENATIDE
     Indication: Type 2 diabetes mellitus
     Route: 058

REACTIONS (6)
  - Anxiety [Unknown]
  - Hyperglycaemia [Not Recovered/Not Resolved]
  - Agitation [Not Recovered/Not Resolved]
  - Fat tissue increased [Unknown]
  - Hypoglycaemia [Not Recovered/Not Resolved]
  - Product dose omission issue [Not Recovered/Not Resolved]
